FAERS Safety Report 6890085-5 (Version None)
Quarter: 2010Q3

REPORT INFORMATION
  Report Type: 
  Country: None (occurrence: None)
  Receive Date: 20100730
  Receipt Date: 20080714
  Transmission Date: 20110219
  Serious: No
  Sender: FDA-Public Use
  Company Number: US-PFIZER INC-2008036382

PATIENT
  Sex: Female
  Weight: 72.57 kg

DRUGS (5)
  1. LIPITOR [Suspect]
     Indication: MITRAL VALVE DISEASE
     Dates: start: 20070501
  2. LIPITOR [Suspect]
     Indication: BLOOD CHOLESTEROL
  3. ZETIA [Suspect]
  4. TOPROL-XL [Concomitant]
     Indication: MITRAL VALVE PROLAPSE
  5. FIORICET [Concomitant]

REACTIONS (4)
  - GINGIVAL PAIN [None]
  - HEADACHE [None]
  - TOOTHACHE [None]
  - WRONG TECHNIQUE IN DRUG USAGE PROCESS [None]
